FAERS Safety Report 9747777 (Version 1)
Quarter: 2013Q4

REPORT INFORMATION
  Report Type: Spontaneous
  Country: CA (occurrence: None)
  Receive Date: 20131206
  Receipt Date: 20131206
  Transmission Date: 20140711
  Serious: Yes (Other)
  Sender: FDA-Public Use
  Company Number: 2013-003816

PATIENT
  Age: 58 Year
  Sex: Female

DRUGS (12)
  1. ACTONEL (RISEDRONATE SODIUM) TABLET [Suspect]
     Route: 048
  2. RITUXAN [Suspect]
     Indication: RHEUMATOID ARTHRITIS
     Dates: start: 20100203
  3. METHOTREXATE (METHOTREXATE) [Concomitant]
  4. CELEBREX (CELECOXIB) [Concomitant]
  5. FOLIC ACID (FOLIC ACID) [Concomitant]
  6. PANTOPRAZOLE (PANTOPRAZOLE) [Concomitant]
  7. CALCIUM (CALCIUM) [Concomitant]
  8. MULTIVITAMIN [Concomitant]
  9. VITAMIN D [Concomitant]
  10. DIPHENHYDRAMINE (DIPHENHYDRAMINE) [Concomitant]
  11. ACETAMINOPHEN (PARACETAMOL) [Concomitant]
  12. METHYLPREDNISOLONE(METHYLPREDNISOLONE) [Concomitant]

REACTIONS (3)
  - Femur fracture [None]
  - Fall [None]
  - Balance disorder [None]
